FAERS Safety Report 5309516-7 (Version None)
Quarter: 2007Q2

REPORT INFORMATION
  Report Type: 
  Country: None (occurrence: None)
  Receive Date: 20070427
  Receipt Date: 20060725
  Transmission Date: 20071010
  Serious: No
  Sender: FDA-Public Use
  Company Number: US-GLAXOSMITHKLINE-A0613502A

PATIENT
  Age: 64 Year
  Sex: Female

DRUGS (6)
  1. AMERGE [Suspect]
     Indication: MIGRAINE
     Dosage: 2.5MG AS REQUIRED
     Route: 048
  2. IMITREX [Suspect]
     Indication: MIGRAINE
     Dosage: 9TAB SEE DOSAGE TEXT
     Route: 048
  3. VICODIN [Concomitant]
  4. TAGAMET [Concomitant]
  5. ALEVE [Concomitant]
  6. BENADRYL [Concomitant]

REACTIONS (2)
  - DRUG INEFFECTIVE [None]
  - OVERDOSE [None]
